FAERS Safety Report 4620939-1 (Version None)
Quarter: 2005Q1

REPORT INFORMATION
  Report Type: 
  Country: None (occurrence: None)
  Receive Date: 20050328
  Receipt Date: 20050318
  Transmission Date: 20050727
  Serious: Yes (Disabling)
  Sender: FDA-Public Use
  Company Number: GB-ABBOTT-05P-167-0294598-00

PATIENT
  Age: 37 Year
  Sex: Male

DRUGS (2)
  1. VALPROATE SODIUM [Suspect]
     Indication: BIPOLAR DISORDER
     Route: 048
     Dates: start: 20020807
  2. VALPROATE SODIUM [Suspect]
     Dates: end: 20020807

REACTIONS (1)
  - LOSS OF LIBIDO [None]
